FAERS Safety Report 8104641-X (Version None)
Quarter: 2012Q1

REPORT INFORMATION
  Report Type: 
  Country: None (occurrence: None)
  Receive Date: 20120130
  Receipt Date: 20120125
  Transmission Date: 20120608
  Serious: Yes (Death, Hospitalization, Other)
  Sender: FDA-Public Use
  Company Number: PHHY2011MX88003

PATIENT
  Sex: Female

DRUGS (2)
  1. DIOVAN HCT [Suspect]
     Indication: HYPERTENSION
     Dosage: 1 DF, DAILY (80 MG VALS AND 12.5 MG HYDR)
     Dates: start: 20090101, end: 20110401
  2. VYTORIN [Concomitant]

REACTIONS (9)
  - RESPIRATORY ARREST [None]
  - PNEUMONIA [None]
  - HIP FRACTURE [None]
  - INCREASED UPPER AIRWAY SECRETION [None]
  - WRONG TECHNIQUE IN DRUG USAGE PROCESS [None]
  - DYSPNOEA [None]
  - MYOCARDIAL INFARCTION [None]
  - GENERAL PHYSICAL HEALTH DETERIORATION [None]
  - FALL [None]
